FAERS Safety Report 5920012-6 (Version None)
Quarter: 2008Q4

REPORT INFORMATION
  Report Type: 
  Country: None (occurrence: None)
  Receive Date: 20081014
  Receipt Date: 20081001
  Transmission Date: 20090506
  Serious: Yes (Hospitalization)
  Sender: FDA-Public Use
  Company Number: 2008-03247

PATIENT
  Sex: Female
  Weight: 71 kg

DRUGS (2)
  1. VELCADE [Suspect]
     Indication: THYROID CANCER
     Dosage: 1.3 MG/M2, IV BOLUS
     Route: 040
     Dates: start: 20080804, end: 20080817
  2. LEVOTHYROXINE SODIUM [Concomitant]

REACTIONS (3)
  - ARRHYTHMIA SUPRAVENTRICULAR [None]
  - NODAL ARRHYTHMIA [None]
  - PLEURAL EFFUSION [None]
